FAERS Safety Report 20061685 (Version 3)
Quarter: 2022Q1

REPORT INFORMATION
  Report Type: Spontaneous
  Country: US (occurrence: US)
  Receive Date: 20211112
  Receipt Date: 20220113
  Transmission Date: 20220423
  Serious: No
  Sender: FDA-Public Use
  Company Number: US-NOVARTISTESTPH-NVSC2021US254944

PATIENT
  Age: 24 Year
  Sex: Male

DRUGS (2)
  1. VOTRIENT [Suspect]
     Active Substance: PAZOPANIB HYDROCHLORIDE
     Indication: Connective tissue neoplasm
     Dosage: 800 MG, QD
     Route: 065
     Dates: start: 20210211
  2. VOTRIENT [Suspect]
     Active Substance: PAZOPANIB HYDROCHLORIDE
     Indication: Soft tissue sarcoma

REACTIONS (5)
  - Neoplasm progression [Unknown]
  - Swelling [Unknown]
  - Weight decreased [Unknown]
  - Hair colour changes [Unknown]
  - Pain [Unknown]

NARRATIVE: CASE EVENT DATE: 20210211
